FAERS Safety Report 5206983-4 (Version None)
Quarter: 2007Q1

REPORT INFORMATION
  Report Type: 
  Country: None (occurrence: None)
  Receive Date: 20070108
  Receipt Date: 20070108
  Transmission Date: 20070707
  Serious: Yes (Life-Threatening, Disabling)
  Sender: FDA-Public Use
  Company Number: None

PATIENT
  Age: 56 Year
  Sex: Male
  Weight: 97.0698 kg

DRUGS (1)
  1. INTERFERON ALFACON-1 9 MCG/0.3 ML [Suspect]
     Indication: HEPATITIS C
     Dosage: 9 MCG DAILY SQ
     Route: 058
     Dates: start: 20060531, end: 20061204

REACTIONS (3)
  - ALANINE AMINOTRANSFERASE INCREASED [None]
  - ASPARTATE AMINOTRANSFERASE INCREASED [None]
  - PNEUMONIA [None]
